FAERS Safety Report 8890083 (Version 1)
Quarter: 2012Q4

REPORT INFORMATION
  Report Type: Spontaneous
  Country: US (occurrence: None)
  Receive Date: 20121105
  Receipt Date: 20121105
  Transmission Date: 20130627
  Serious: Yes (Hospitalization, Disabling, Other)
  Sender: FDA-Public Use
  Company Number: None

PATIENT
  Age: 40 Year
  Sex: Male
  Weight: 79.38 kg

DRUGS (5)
  1. PROPECIA [Suspect]
     Indication: HAIR LOSS
     Dosage: 1mg daily po
     Route: 048
  2. PROPECIA [Suspect]
     Indication: PROPHYLAXIS
     Dosage: 1mg daily po
     Route: 048
  3. FINASTERIDE [Suspect]
     Indication: HAIR LOSS
  4. FINASTERIDE [Suspect]
     Indication: PROPHYLAXIS
  5. PROSCAR [Concomitant]

REACTIONS (13)
  - Depression [None]
  - Loss of employment [None]
  - Attention deficit/hyperactivity disorder [None]
  - Suicidal ideation [None]
  - Loss of libido [None]
  - Affective disorder [None]
  - Cognitive disorder [None]
  - Amnesia [None]
  - Panic attack [None]
  - Sexual dysfunction [None]
  - Secondary hypogonadism [None]
  - Loss of consciousness [None]
  - Partner stress [None]
